FAERS Safety Report 9141605 (Version 1)
Quarter: 2013Q1

REPORT INFORMATION
  Report Type: Spontaneous
  Country: US (occurrence: US)
  Receive Date: 20130305
  Receipt Date: 20130305
  Transmission Date: 20140127
  Serious: No
  Sender: FDA-Public Use
  Company Number: US-AMGEN-USASP2013009972

PATIENT
  Age: 69 Year
  Sex: Female

DRUGS (2)
  1. ENBREL [Suspect]
     Indication: RHEUMATOID ARTHRITIS
     Dosage: 50 MG, QWK
     Dates: start: 20130204
  2. METHOTREXATE [Concomitant]
     Dosage: 8 TABLETS (2.5) MG WEEKLY
     Dates: start: 201110

REACTIONS (1)
  - Injection site pain [Not Recovered/Not Resolved]
